FAERS Safety Report 7928050-9 (Version None)
Quarter: 2011Q4

REPORT INFORMATION
  Report Type: 
  Country: None (occurrence: None)
  Receive Date: 20111118
  Receipt Date: 20111110
  Transmission Date: 20120403
  Serious: Yes (Hospitalization)
  Sender: FDA-Public Use
  Company Number: GR-JNJFOC-20111106488

PATIENT
  Age: 50 Year
  Sex: Female

DRUGS (3)
  1. STELARA [Suspect]
     Indication: PSORIASIS
     Route: 058
     Dates: start: 20110701
  2. STELARA [Suspect]
     Route: 058
     Dates: start: 20111004
  3. STELARA [Suspect]
     Route: 058
     Dates: start: 20101101

REACTIONS (2)
  - OPTIC ISCHAEMIC NEUROPATHY [None]
  - BLINDNESS [None]
